FAERS Safety Report 17433651 (Version 2)
Quarter: 2020Q4

REPORT INFORMATION
  Report Type: Spontaneous
  Country: US (occurrence: US)
  Receive Date: 20200219
  Receipt Date: 20201002
  Transmission Date: 20210113
  Serious: Yes (Other)
  Sender: FDA-Public Use
  Company Number: US-ASTRAZENECA-2020SE21386

PATIENT
  Age: 15425 Day
  Sex: Female
  Weight: 68 kg

DRUGS (70)
  1. NEXIUM [Suspect]
     Active Substance: ESOMEPRAZOLE MAGNESIUM
     Indication: GASTROOESOPHAGEAL REFLUX DISEASE
     Dosage: GENERIC40.0MG UNKNOWN
     Route: 065
     Dates: start: 20150228
  2. NEXIUM 24HR [Suspect]
     Active Substance: ESOMEPRAZOLE MAGNESIUM
     Indication: GASTROOESOPHAGEAL REFLUX DISEASE
     Route: 048
     Dates: start: 201201, end: 201803
  3. IBUPROFEN. [Concomitant]
     Active Substance: IBUPROFEN
  4. CYCLOBENZAPRINE. [Concomitant]
     Active Substance: CYCLOBENZAPRINE
  5. LEVOFLOXACIN. [Concomitant]
     Active Substance: LEVOFLOXACIN
  6. AMLODIPINE [Concomitant]
     Active Substance: AMLODIPINE BESYLATE
  7. NITROFURANTOIN. [Concomitant]
     Active Substance: NITROFURANTOIN
  8. FOSINOPRIL [Concomitant]
     Active Substance: FOSINOPRIL
  9. HYDRALAZINE [Concomitant]
     Active Substance: HYDRALAZINE HYDROCHLORIDE
  10. RENO [Concomitant]
  11. LATANOPROST. [Concomitant]
     Active Substance: LATANOPROST
  12. GABAPENTIN. [Concomitant]
     Active Substance: GABAPENTIN
  13. MAGNESIUM [Concomitant]
     Active Substance: MAGNESIUM
  14. LISINOPRIL-HCTZ [Concomitant]
     Active Substance: HYDROCHLOROTHIAZIDE\LISINOPRIL
  15. CELEXA [Concomitant]
     Active Substance: CITALOPRAM HYDROBROMIDE
  16. PRILOSEC [Concomitant]
     Active Substance: OMEPRAZOLE MAGNESIUM
  17. NEXIUM 24HR [Suspect]
     Active Substance: ESOMEPRAZOLE MAGNESIUM
     Indication: GASTROOESOPHAGEAL REFLUX DISEASE
     Dosage: 20.0MG UNKNOWN
     Route: 048
     Dates: start: 2015, end: 2018
  18. METFORMIN [Concomitant]
     Active Substance: METFORMIN HYDROCHLORIDE
     Indication: DIABETES MELLITUS
     Route: 065
     Dates: start: 2017
  19. GLIMEPIRIDE. [Concomitant]
     Active Substance: GLIMEPIRIDE
  20. PROAIR HFA [Concomitant]
     Active Substance: ALBUTEROL SULFATE
  21. FERROUS SULFATE. [Concomitant]
     Active Substance: FERROUS SULFATE
  22. IRON [Concomitant]
     Active Substance: IRON
  23. METOLAZONE. [Concomitant]
     Active Substance: METOLAZONE
  24. ZINACEF [Concomitant]
     Active Substance: CEFUROXIME SODIUM
  25. LISINOPRIL. [Concomitant]
     Active Substance: LISINOPRIL
  26. DEXAMETHASONE. [Concomitant]
     Active Substance: DEXAMETHASONE
  27. HYDROCHLOROTHIAZIDE. [Concomitant]
     Active Substance: HYDROCHLOROTHIAZIDE
  28. LEVEMIR [Concomitant]
     Active Substance: INSULIN DETEMIR
  29. CLONIDINE. [Concomitant]
     Active Substance: CLONIDINE
  30. FUROSEMIDE. [Concomitant]
     Active Substance: FUROSEMIDE
  31. DULOXETINE. [Concomitant]
     Active Substance: DULOXETINE
  32. NEXIUM [Suspect]
     Active Substance: ESOMEPRAZOLE MAGNESIUM
     Indication: GASTROOESOPHAGEAL REFLUX DISEASE
     Dosage: 40.0MG UNKNOWN
     Route: 048
     Dates: start: 20120201
  33. NEXIUM [Suspect]
     Active Substance: ESOMEPRAZOLE MAGNESIUM
     Indication: GASTROOESOPHAGEAL REFLUX DISEASE
     Dosage: GENERIC30.0MG UNKNOWN
     Route: 065
     Dates: start: 20170703
  34. OXYCODONE-ACETAMINOPHEN [Concomitant]
     Active Substance: ACETAMINOPHEN\OXYCODONE HYDROCHLORIDE
  35. PHENAZOPYRIDINE. [Concomitant]
     Active Substance: PHENAZOPYRIDINE
  36. FLUTICASONE. [Concomitant]
     Active Substance: FLUTICASONE
  37. BENZONATATE. [Concomitant]
     Active Substance: BENZONATATE
  38. FOLIC ACID. [Concomitant]
     Active Substance: FOLIC ACID
  39. CARISOPRODOL. [Concomitant]
     Active Substance: CARISOPRODOL
  40. VITAMIN D3 [Concomitant]
     Active Substance: CHOLECALCIFEROL
  41. ONDANSETRON [Concomitant]
     Active Substance: ONDANSETRON
  42. GLIPIZIDE. [Concomitant]
     Active Substance: GLIPIZIDE
     Indication: DIABETES MELLITUS
     Route: 065
     Dates: start: 2012, end: 2018
  43. LEVOTHYROXINE. [Concomitant]
     Active Substance: LEVOTHYROXINE
  44. OXYCONTIN [Concomitant]
     Active Substance: OXYCODONE HYDROCHLORIDE
  45. CIPROFLOXACIN. [Concomitant]
     Active Substance: CIPROFLOXACIN
  46. ALPRAZOLAM. [Concomitant]
     Active Substance: ALPRAZOLAM
  47. ALBUTEROL. [Concomitant]
     Active Substance: ALBUTEROL
  48. LABETALOL [Concomitant]
     Active Substance: LABETALOL\LABETALOL HYDROCHLORIDE
  49. ACETAMINOPHEN. [Concomitant]
     Active Substance: ACETAMINOPHEN
  50. LIPITOR [Concomitant]
     Active Substance: ATORVASTATIN CALCIUM
     Indication: BLOOD CHOLESTEROL ABNORMAL
     Route: 065
     Dates: start: 2012, end: 2018
  51. CIPROFLOXACIN. [Concomitant]
     Active Substance: CIPROFLOXACIN
  52. NICOTINE. [Concomitant]
     Active Substance: NICOTINE
  53. OXYMORPHONE [Concomitant]
     Active Substance: OXYMORPHONE
  54. VITAMIN D2 [Concomitant]
     Active Substance: ERGOCALCIFEROL
  55. LOSARTAN. [Concomitant]
     Active Substance: LOSARTAN
  56. CIPRODEX [Concomitant]
     Active Substance: CIPROFLOXACIN HYDROCHLORIDE\DEXAMETHASONE
  57. NIFEDIPINE. [Concomitant]
     Active Substance: NIFEDIPINE
  58. MAGNESIUM OXIDE. [Concomitant]
     Active Substance: MAGNESIUM OXIDE
  59. LORAZEPAM. [Concomitant]
     Active Substance: LORAZEPAM
  60. BRIMONIDINE [Concomitant]
     Active Substance: BRIMONIDINE TARTRATE
  61. NEXIUM [Suspect]
     Active Substance: ESOMEPRAZOLE MAGNESIUM
     Indication: GASTROOESOPHAGEAL REFLUX DISEASE
     Route: 048
     Dates: start: 201201, end: 201803
  62. NEXIUM [Suspect]
     Active Substance: ESOMEPRAZOLE MAGNESIUM
     Indication: GASTROOESOPHAGEAL REFLUX DISEASE
     Dosage: 40.0MG UNKNOWN
     Route: 048
     Dates: start: 2012, end: 2015
  63. NEXIUM 24HR [Suspect]
     Active Substance: ESOMEPRAZOLE MAGNESIUM
     Indication: GASTROOESOPHAGEAL REFLUX DISEASE
     Dosage: 20.0MG UNKNOWN
     Route: 048
     Dates: start: 20180215
  64. AMOXICILLIN. [Concomitant]
     Active Substance: AMOXICILLIN
  65. NAPROXEN. [Concomitant]
     Active Substance: NAPROXEN
  66. POLYETHYLENE GLYCOL [Concomitant]
     Active Substance: POLYETHYLENE GLYCOLS
  67. MEDROXYPROGESTERONE [Concomitant]
     Active Substance: MEDROXYPROGESTERONE
  68. NOVOLOG [Concomitant]
     Active Substance: INSULIN ASPART
  69. ZEMPLAR [Concomitant]
     Active Substance: PARICALCITOL
  70. ASPIRIN. [Concomitant]
     Active Substance: ASPIRIN

REACTIONS (5)
  - Nephrogenic anaemia [Unknown]
  - Chronic kidney disease [Not Recovered/Not Resolved]
  - Acute kidney injury [Unknown]
  - Renal failure [Unknown]
  - End stage renal disease [Unknown]

NARRATIVE: CASE EVENT DATE: 20150718
